FAERS Safety Report 9278167 (Version 1)
Quarter: 2013Q2

REPORT INFORMATION
  Report Type: Spontaneous
  Country: HR (occurrence: HR)
  Receive Date: 20130508
  Receipt Date: 20130508
  Transmission Date: 20140414
  Serious: Yes (Other)
  Sender: FDA-Public Use
  Company Number: HR-B.I. PHARMACEUTICALS,INC./RIDGEFIELD-2013-BI-11951GD

PATIENT
  Age: 83 Year
  Sex: Male

DRUGS (5)
  1. PRAMIPEXOLE [Suspect]
     Dosage: 3 MG
  2. METHYLDIGOXIN [Concomitant]
     Dosage: 0.2 MG
  3. WARFARIN SODIUM [Concomitant]
     Dosage: 3 MG
  4. CANDESARTAN CILEXETIL [Concomitant]
     Dosage: 8 MG
  5. CARVEDILOL [Concomitant]
     Dosage: 12.5 MG

REACTIONS (9)
  - Bradycardia [Recovered/Resolved]
  - Hypotension [Recovered/Resolved]
  - Accidental exposure to product [Recovered/Resolved]
  - Wrong drug administered [Recovered/Resolved]
  - Nausea [Recovered/Resolved]
  - Pallor [Recovered/Resolved]
  - Cold sweat [Recovered/Resolved]
  - Asthenia [Recovered/Resolved]
  - Vomiting [Recovered/Resolved]
